FAERS Safety Report 22235637 (Version 1)
Quarter: 2023Q2

REPORT INFORMATION
  Report Type: Spontaneous
  Country: SE (occurrence: SE)
  Receive Date: 20230420
  Receipt Date: 20230420
  Transmission Date: 20230721
  Serious: Yes (Other)
  Sender: FDA-Public Use
  Company Number: None

PATIENT
  Age: 52 Year
  Sex: Female

DRUGS (6)
  1. BRIVIACT [Suspect]
     Active Substance: BRIVARACETAM
     Indication: Epilepsy
     Dosage: 1+1
     Route: 048
     Dates: start: 20220315, end: 20220831
  2. TRILEPTAL [Suspect]
     Active Substance: OXCARBAZEPINE
     Indication: Epilepsy
     Dosage: 300 MILLIGRAM
     Dates: start: 20220831, end: 20221130
  3. TOPIRAMAT ORION [Concomitant]
     Indication: Product used for unknown indication
     Dosage: 100 MILLIGRAM
  4. FYCOMPA [Concomitant]
     Active Substance: PERAMPANEL
     Indication: Product used for unknown indication
     Dosage: 8.3 MILLIGRAM
  5. LEVETIRACETAM ORION [Concomitant]
     Indication: Product used for unknown indication
     Dosage: 200 MILLIGRAM
     Dates: start: 20221130
  6. CLOBAZAM [Concomitant]
     Active Substance: CLOBAZAM
     Indication: Product used for unknown indication
     Dosage: 0+1

REACTIONS (1)
  - Cholangitis sclerosing [Not Recovered/Not Resolved]

NARRATIVE: CASE EVENT DATE: 20220401
